FAERS Safety Report 5807658-0 (Version None)
Quarter: 2008Q3

REPORT INFORMATION
  Report Type: 
  Country: None (occurrence: None)
  Receive Date: 20080711
  Receipt Date: 20080702
  Transmission Date: 20090109
  Serious: Yes (Other)
  Sender: FDA-Public Use
  Company Number: BR-ROCHE-574344

PATIENT
  Age: 16 Year
  Sex: Male

DRUGS (1)
  1. ROACUTAN [Suspect]
     Indication: ACNE
     Dosage: RECEIVED ON ALTERNATE DAYS
     Route: 048
     Dates: start: 20070101, end: 20070101

REACTIONS (1)
  - NEPHROTIC SYNDROME [None]
